FAERS Safety Report 10541311 (Version 2)
Quarter: 2014Q4

REPORT INFORMATION
  Report Type: Spontaneous
  Country: US (occurrence: None)
  Receive Date: 20141010
  Receipt Date: 20141205
  Transmission Date: 20150529
  Serious: Yes (Other)
  Sender: FDA-Public Use
  Company Number: 163-POMAL-14074253

PATIENT
  Age: 84 Year
  Sex: Female

DRUGS (10)
  1. ARTHRI-FLEX ADVANCTAGE (OTHER THERAPEUTIC PRODUCTS) [Concomitant]
  2. COMBIGAN [Concomitant]
     Active Substance: BRIMONIDINE TARTRATE\TIMOLOL MALEATE
  3. MULTIVITAMINS [Concomitant]
     Active Substance: VITAMINS
  4. DEXAMETHASONE. [Concomitant]
     Active Substance: DEXAMETHASONE
  5. LUMIGAN (BIMATOPROST) [Concomitant]
  6. POMALYST [Suspect]
     Active Substance: POMALIDOMIDE
     Indication: PLASMA CELL MYELOMA
     Route: 048
     Dates: start: 20140618
  7. VITAMIN D3 [Concomitant]
     Active Substance: CHOLECALCIFEROL
  8. FOLBEE (TRIOBE) [Concomitant]
  9. METOPROLOL TARTRATE. [Concomitant]
     Active Substance: METOPROLOL TARTRATE
  10. VITAMIN B12 [Concomitant]
     Active Substance: CYANOCOBALAMIN

REACTIONS (12)
  - Limb discomfort [None]
  - Heart rate increased [None]
  - Swelling face [None]
  - Blood pressure increased [None]
  - Nausea [None]
  - Muscular weakness [None]
  - Night sweats [None]
  - Cold sweat [None]
  - Abdominal rigidity [None]
  - Fatigue [None]
  - Pain in extremity [None]
  - Anxiety [None]

NARRATIVE: CASE EVENT DATE: 20140711
